APPROVED DRUG PRODUCT: FENTORA
Active Ingredient: FENTANYL CITRATE
Strength: EQ 0.3MG BASE **Federal Register determination that product was not discontinued or withdrawn for safety or effectiveness reasons**
Dosage Form/Route: TABLET;BUCCAL, SUBLINGUAL
Application: N021947 | Product #006
Applicant: CEPHALON LLC
Approved: Mar 2, 2007 | RLD: Yes | RS: No | Type: DISCN